FAERS Safety Report 10743745 (Version 2)
Quarter: 2015Q1

REPORT INFORMATION
  Report Type: Report from Study
  Country: FR (occurrence: FR)
  Receive Date: 20150128
  Receipt Date: 20150204
  Transmission Date: 20150721
  Serious: Yes (Other)
  Sender: FDA-Public Use
  Company Number: FR-ASTRAZENECA-2015SE07550

PATIENT
  Age: 60 Year
  Sex: Male

DRUGS (6)
  1. KARDEGIC [Concomitant]
     Active Substance: ASPIRIN LYSINE
     Dosage: 75
  2. EUPANTOL [Concomitant]
     Active Substance: PANTOPRAZOLE SODIUM
  3. BRILIQUE [Suspect]
     Active Substance: TICAGRELOR
     Indication: MYOCARDIAL INFARCTION
     Dosage: 90
     Route: 048
     Dates: start: 201307
  4. SELOKEN [Concomitant]
     Active Substance: METOPROLOL
     Dosage: 50
  5. TRIATEC [Concomitant]
     Active Substance: RAMIPRIL
  6. TAHOR [Concomitant]
     Active Substance: ATORVASTATIN CALCIUM
     Dosage: 40

REACTIONS (2)
  - Irritability [Unknown]
  - Diverticulitis [Unknown]
